FAERS Safety Report 8805134 (Version 1)
Quarter: 2012Q4

REPORT INFORMATION
  Report Type: 
  Country: US (occurrence: US)
  Receive Date: 20120924
  Receipt Date: 20120924
  Transmission Date: 20130627
  Serious: No
  Sender: FDA-Public Use
  Company Number: US-B.I. PHARMACEUTICALS,INC./RIDGEFIELD-2012-BP-22873BP

PATIENT
  Sex: Female
  Weight: 74.84 kg

DRUGS (8)
  1. PRADAXA [Suspect]
     Dosage: 300 mg
     Route: 048
     Dates: start: 201108, end: 20120806
  2. XARELTO [Concomitant]
     Indication: ATRIAL FIBRILLATION
     Dosage: 15 mg
     Route: 048
     Dates: start: 20120806
  3. MULTAQ [Concomitant]
     Indication: ARRHYTHMIA
     Dosage: 800 mg
     Route: 048
     Dates: start: 200904
  4. LISINOPRIL [Concomitant]
     Indication: HYPERTENSION
     Dosage: 10 mg
     Route: 048
     Dates: start: 2007
  5. FUROSEMIDE [Concomitant]
     Indication: FLUID RETENTION
     Dosage: 60 mg
     Route: 048
     Dates: start: 201004
  6. SIMVASTATIN [Concomitant]
     Indication: BLOOD CHOLESTEROL INCREASED
     Dosage: 20 mg
     Route: 048
     Dates: start: 2010
  7. LEVOTHYROXINE [Concomitant]
     Indication: THYROIDECTOMY
     Dosage: 125 mcg
     Route: 048
     Dates: start: 1982
  8. AMLODIPINE [Concomitant]
     Indication: HYPERTENSION
     Dosage: 5 mg
     Route: 048
     Dates: start: 2010

REACTIONS (2)
  - Gastrooesophageal reflux disease [Not Recovered/Not Resolved]
  - Dysphonia [Recovered/Resolved]
